FAERS Safety Report 7595744-7 (Version None)
Quarter: 2011Q3

REPORT INFORMATION
  Report Type: 
  Country: None (occurrence: None)
  Receive Date: 20110707
  Receipt Date: 20110705
  Transmission Date: 20111222
  Serious: Yes (Other)
  Sender: FDA-Public Use
  Company Number: US-PFIZER INC-2007085929

PATIENT
  Sex: Female
  Weight: 88.435 kg

DRUGS (10)
  1. ZOCOR [Suspect]
     Dosage: UNK
  2. LIPITOR [Suspect]
     Indication: BLOOD CHOLESTEROL INCREASED
     Dosage: UNK
  3. NORVASC [Suspect]
     Indication: BLOOD PRESSURE
     Dosage: 5 MG, 1X/DAY
     Route: 048
  4. AMLODIPINE [Suspect]
     Dosage: 5 MG, 1X/DAY
     Dates: start: 20070429
  5. AMLODIPINE [Suspect]
     Dosage: 5 MG, 1X/DAY
     Dates: start: 20070916
  6. PREDNISONE [Suspect]
     Dosage: UNK
     Route: 048
  7. ARTHROTEC [Suspect]
     Dosage: UNK
  8. NORVASC [Suspect]
     Dosage: 10 MG, 1X/DAY
     Route: 048
  9. CLINDAMYCIN HCL [Suspect]
     Dosage: UNK
  10. SYNTHROID [Concomitant]
     Dosage: 50 UG, UNK

REACTIONS (13)
  - CHEST DISCOMFORT [None]
  - MUSCULOSKELETAL PAIN [None]
  - MYALGIA [None]
  - TINNITUS [None]
  - DRUG HYPERSENSITIVITY [None]
  - HYPERTENSION [None]
  - URTICARIA [None]
  - MUSCULOSKELETAL STIFFNESS [None]
  - ATRIAL FIBRILLATION [None]
  - OEDEMA PERIPHERAL [None]
  - RHINORRHOEA [None]
  - RASH PRURITIC [None]
  - BODY HEIGHT DECREASED [None]
